FAERS Safety Report 15485154 (Version 1)
Quarter: 2018Q4

REPORT INFORMATION
  Report Type: Spontaneous
  Country: US (occurrence: US)
  Receive Date: 20181010
  Receipt Date: 20181010
  Transmission Date: 20190205
  Serious: No
  Sender: FDA-Public Use
  Company Number: US-ROCHE-2151839

PATIENT
  Sex: Female

DRUGS (2)
  1. ALECENSA [Suspect]
     Active Substance: ALECTINIB HYDROCHLORIDE
     Dosage: 150 MG 2 CAPSULES IN AM AND 2 CAPSULES IN PM ;ONGOING: UNKNOWN
     Route: 048
  2. ALECENSA [Suspect]
     Active Substance: ALECTINIB HYDROCHLORIDE
     Indication: NON-SMALL CELL LUNG CANCER
     Dosage: ONGOING: NO
     Route: 048
     Dates: start: 201802

REACTIONS (5)
  - Blood potassium decreased [Unknown]
  - Myalgia [Recovered/Resolved]
  - Constipation [Recovered/Resolved]
  - Diarrhoea [Not Recovered/Not Resolved]
  - Faeces pale [Not Recovered/Not Resolved]
